FAERS Safety Report 17591040 (Version 1)
Quarter: 2020Q1

REPORT INFORMATION
  Report Type: Spontaneous
  Country: US (occurrence: US)
  Receive Date: 20200327
  Receipt Date: 20200327
  Transmission Date: 20200409
  Serious: Yes (Other)
  Sender: FDA-Public Use
  Company Number: US-009507513-2003USA007221

PATIENT
  Age: 22 Year
  Sex: Female
  Weight: 115.19 kg

DRUGS (1)
  1. NEXPLANON [Suspect]
     Active Substance: ETONOGESTREL
     Dosage: 1 ROD/ EVERY 3 YEARS
     Route: 059
     Dates: start: 20141029

REACTIONS (5)
  - Device dislocation [Not Recovered/Not Resolved]
  - Obesity [Unknown]
  - Complication associated with device [Not Recovered/Not Resolved]
  - Incorrect product administration duration [Unknown]
  - Menstruation normal [Unknown]

NARRATIVE: CASE EVENT DATE: 20171030
